FAERS Safety Report 12538851 (Version 2)
Quarter: 2016Q3

REPORT INFORMATION
  Report Type: Report from Study
  Country: US (occurrence: US)
  Receive Date: 20160708
  Receipt Date: 20160809
  Transmission Date: 20161109
  Serious: No
  Sender: FDA-Public Use
  Company Number: US-ASTRAZENECA-2016SE71578

PATIENT

DRUGS (4)
  1. BYDUREON [Suspect]
     Active Substance: EXENATIDE
     Route: 065
  2. BYETTA [Suspect]
     Active Substance: EXENATIDE
     Route: 065
  3. LANTUS [Concomitant]
     Active Substance: INSULIN GLARGINE
  4. VICTOZA [Concomitant]
     Active Substance: LIRAGLUTIDE

REACTIONS (4)
  - Constipation [Unknown]
  - Adverse drug reaction [Unknown]
  - Laboratory test abnormal [Unknown]
  - Drug ineffective [Unknown]
